FAERS Safety Report 7609493-X (Version None)
Quarter: 2011Q3

REPORT INFORMATION
  Report Type: 
  Country: None (occurrence: None)
  Receive Date: 20110714
  Receipt Date: 20110705
  Transmission Date: 20111222
  Serious: Yes (Other)
  Sender: FDA-Public Use
  Company Number: PHHY2011DE60672

PATIENT
  Age: 10 Year
  Sex: Female
  Weight: 36 kg

DRUGS (9)
  1. PREDNISONE [Suspect]
     Dosage: 10 MG, DAILY
  2. METHOTREXATE [Concomitant]
     Indication: POLYCHONDRITIS
     Dosage: 0.5 MG/KG, QW
     Route: 058
  3. PREDNISONE [Suspect]
     Indication: POLYCHONDRITIS
     Dosage: 1 MG/KG, QD
  4. ETANERCEPT [Concomitant]
     Indication: POLYCHONDRITIS
     Dosage: 25 MG, QW
     Route: 058
  5. METHYLPREDNISOLONE [Suspect]
     Indication: POLYCHONDRITIS
     Dosage: 1 G, QD
     Route: 042
  6. PREDNISONE [Suspect]
     Dosage: 30 MG, QD
  7. IMMUNOGLOBULINS [Concomitant]
     Dosage: 2 G/KG, UNK
     Route: 042
  8. INFLIXIMAB [Concomitant]
  9. ANAKINRA [Concomitant]
     Dosage: 100 MG, DAILY
     Route: 058

REACTIONS (6)
  - CUSHING'S SYNDROME [None]
  - EPIDURAL LIPOMATOSIS [None]
  - WEIGHT INCREASED [None]
  - BACK PAIN [None]
  - SWELLING [None]
  - INJECTION SITE PAIN [None]
